FAERS Safety Report 25704023 (Version 2)
Quarter: 2025Q3

REPORT INFORMATION
  Report Type: Report from Study
  Country: US (occurrence: US)
  Receive Date: 20250820
  Receipt Date: 20250926
  Transmission Date: 20251020
  Serious: No
  Sender: SUNOVION
  Company Number: US-SUMITOMO PHARMA SWITZERLAND GMBH-2025SPA000114

PATIENT
  Age: 71 Year
  Sex: Male

DRUGS (7)
  1. ORGOVYX [Suspect]
     Active Substance: RELUGOLIX
     Indication: Prostate cancer
     Dosage: 360 MG, SINGLE
     Route: 048
     Dates: start: 20241209, end: 20241209
  2. ORGOVYX [Suspect]
     Active Substance: RELUGOLIX
     Dosage: 120 MG, QD
     Route: 048
     Dates: start: 20241210
  3. AMLODIPINE [Concomitant]
     Active Substance: AMLODIPINE BESYLATE
  4. FLOMAX [Concomitant]
     Active Substance: TAMSULOSIN HYDROCHLORIDE
  5. GABAPENTIN [Concomitant]
     Active Substance: GABAPENTIN
  6. VITAMINS [Concomitant]
     Active Substance: VITAMINS
  7. ROSUVASTATIN [Concomitant]
     Active Substance: ROSUVASTATIN

REACTIONS (2)
  - Erectile dysfunction [Unknown]
  - Hot flush [Unknown]

NARRATIVE: CASE EVENT DATE: 20250801
